FAERS Safety Report 16539405 (Version 1)
Quarter: 2019Q3

REPORT INFORMATION
  Report Type: Spontaneous
  Country: US (occurrence: US)
  Receive Date: 20190708
  Receipt Date: 20190708
  Transmission Date: 20191004
  Serious: Yes (Death, Hospitalization)
  Sender: FDA-Public Use
  Company Number: US-PFIZER INC-2019127055

PATIENT
  Age: 68 Year
  Sex: Male
  Weight: 47 kg

DRUGS (2)
  1. RAPAMUNE [Suspect]
     Active Substance: SIROLIMUS
     Indication: LUNG TRANSPLANT REJECTION
  2. RAPAMUNE [Suspect]
     Active Substance: SIROLIMUS
     Indication: LUNG TRANSPLANT
     Dosage: 0.15 MG, DAILY
     Route: 048
     Dates: start: 20190318

REACTIONS (6)
  - Confusional state [Unknown]
  - Fall [Unknown]
  - Product use in unapproved indication [Unknown]
  - Infection [Fatal]
  - Asthenia [Unknown]
  - Off label use [Unknown]

NARRATIVE: CASE EVENT DATE: 20190318
